FAERS Safety Report 4342866-X (Version None)
Quarter: 2004Q2

REPORT INFORMATION
  Report Type: 
  Country: None (occurrence: None)
  Receive Date: 20040416
  Receipt Date: 20040331
  Transmission Date: 20050107
  Serious: Yes (Hospitalization)
  Sender: FDA-Public Use
  Company Number: 6008211

PATIENT
  Age: 68 Year
  Sex: Male

DRUGS (2)
  1. METFORMIN HCL [Suspect]
     Dosage: 1700,00 MG 850 MG, 2 IN 1 D)
  2. GLIBENCLAMID (GLIBENCLAMIDE) [Concomitant]

REACTIONS (1)
  - GENERALISED ERYTHEMA [None]
